FAERS Safety Report 4876842-5 (Version None)
Quarter: 2005Q4

REPORT INFORMATION
  Report Type: 
  Country: None (occurrence: None)
  Receive Date: 20051206
  Receipt Date: 20050816
  Transmission Date: 20060501
  Serious: No
  Sender: FDA-Public Use
  Company Number: USA0507104125

PATIENT
  Age: 22 Year
  Sex: Female
  Weight: 55 kg

DRUGS (3)
  1. CYMBALTA [Suspect]
     Indication: BACK PAIN
     Dosage: 60 MG
     Dates: start: 20050405, end: 20050705
  2. SANCTRUA (TROSPIUM CHLORIDE) [Concomitant]
  3. ULTRAM [Concomitant]

REACTIONS (2)
  - BLOOD PRESSURE INCREASED [None]
  - MYDRIASIS [None]
